FAERS Safety Report 16181739 (Version 3)
Quarter: 2019Q2

REPORT INFORMATION
  Report Type: Spontaneous
  Country: NL (occurrence: NL)
  Receive Date: 20190410
  Receipt Date: 20190605
  Transmission Date: 20190711
  Serious: Yes (Death, Other)
  Sender: FDA-Public Use
  Company Number: NL-MYLANLABS-2019M1033201

PATIENT

DRUGS (2)
  1. BEVACIZUMAB. [Suspect]
     Active Substance: BEVACIZUMAB
     Indication: GLIOMA
     Dosage: 10 MILLIGRAM/KILOGRAM, CYCLE (10 MG/KG, CYCLICAL (EVERY 2 WEEKS))
     Route: 042
  2. TEMOZOLOMIDE. [Suspect]
     Active Substance: TEMOZOLOMIDE
     Indication: GLIOMA
     Dosage: UNK UNK, CYCLE (150-200 MG/M2, CYCLICAL (ON DAY 1-5 EVERY 4 WEEKS))
     Route: 048

REACTIONS (3)
  - Lung infection [Fatal]
  - Tumour haemorrhage [Fatal]
  - Thrombocytopenia [Fatal]
